FAERS Safety Report 10650715 (Version 1)
Quarter: 2014Q4

REPORT INFORMATION
  Report Type: Spontaneous
  Country: US (occurrence: US)
  Receive Date: 20141215
  Receipt Date: 20141215
  Transmission Date: 20150529
  Serious: No
  Sender: FDA-Public Use
  Company Number: US-BAUSCH-SYM-2014-22644

PATIENT
  Sex: Female

DRUGS (2)
  1. XENAZINE [Suspect]
     Active Substance: TETRABENAZINE
     Indication: DYSTONIA
  2. XENAZINE [Suspect]
     Active Substance: TETRABENAZINE

REACTIONS (3)
  - Off label use [Unknown]
  - Tongue movement disturbance [Unknown]
  - Tremor [Unknown]
